FAERS Safety Report 8374668-1 (Version None)
Quarter: 2012Q2

REPORT INFORMATION
  Report Type: 
  Country: None (occurrence: None)
  Receive Date: 20120521
  Receipt Date: 20120326
  Transmission Date: 20120825
  Serious: No
  Sender: FDA-Public Use
  Company Number: US-ASTRAZENECA-2012SE21791

PATIENT
  Sex: Female

DRUGS (1)
  1. PRILOSEC OTC [Suspect]
     Route: 048
     Dates: start: 20120323, end: 20120324

REACTIONS (9)
  - OROPHARYNGEAL DISCOMFORT [None]
  - DYSPNOEA [None]
  - HEADACHE [None]
  - CHEST PAIN [None]
  - BLOOD PRESSURE INCREASED [None]
  - ABDOMINAL PAIN UPPER [None]
  - FEELING ABNORMAL [None]
  - HEART RATE INCREASED [None]
  - SENSATION OF BLOOD FLOW [None]
